FAERS Safety Report 20516877 (Version 1)
Quarter: 2022Q1

REPORT INFORMATION
  Report Type: Spontaneous
  Country: TW (occurrence: TW)
  Receive Date: 20220225
  Receipt Date: 20220225
  Transmission Date: 20220423
  Serious: Yes (Other)
  Sender: FDA-Public Use
  Company Number: TW-002147023-NVSC2022TW037159

PATIENT
  Age: 69 Year
  Sex: Female

DRUGS (1)
  1. LUCENTIS [Suspect]
     Active Substance: RANIBIZUMAB
     Indication: Retinal vein occlusion
     Route: 047
     Dates: start: 202110

REACTIONS (6)
  - Retinal thickening [Unknown]
  - Eye haemorrhage [Unknown]
  - Visual acuity tests abnormal [Unknown]
  - Fluorescence angiogram abnormal [Unknown]
  - Vision blurred [Unknown]
  - Optical coherence tomography abnormal [Unknown]

NARRATIVE: CASE EVENT DATE: 20220210
